FAERS Safety Report 8961554 (Version 1)
Quarter: 2012Q4

REPORT INFORMATION
  Report Type: 
  Country: DE (occurrence: US)
  Receive Date: 20121213
  Receipt Date: 20121213
  Transmission Date: 20130627
  Serious: Yes (Hospitalization, Other)
  Sender: FDA-Public Use
  Company Number: US-BAYER-2012-130419

PATIENT
  Age: 20 Year
  Sex: Male

DRUGS (2)
  1. ANTIHEMOPHILIC FACTOR VIII (RECOMBINANT), SUCROSE FORMULATED [Suspect]
     Indication: HEMOPHILIA A
  2. ANTIHEMOPHILIC FACTOR VIII (RECOMBINANT), SUCROSE FORMULATED [Suspect]
     Indication: TRAUMATIC BLEEDING

REACTIONS (4)
  - Factor VIII inhibition [Recovered/Resolved]
  - Mass [Recovered/Resolved]
  - Wound secretion [Recovered/Resolved]
  - Gastrointestinal haemorrhage [Recovered/Resolved]
